FAERS Safety Report 10503343 (Version 4)
Quarter: 2015Q1

REPORT INFORMATION
  Report Type: Spontaneous
  Country: US (occurrence: US)
  Receive Date: 20141008
  Receipt Date: 20150129
  Transmission Date: 20150720
  Serious: Yes (Hospitalization)
  Sender: FDA-Public Use
  Company Number: US-UNITED THERAPEUTICS-UNT-2014-008680

PATIENT
  Age: 34 Year
  Sex: Male
  Weight: 83.9 kg

DRUGS (7)
  1. REMODULIN [Suspect]
     Active Substance: TREPROSTINIL
     Dosage: 0.04625 ?G/KG, CONTINUING
     Route: 041
     Dates: start: 20140813
  2. OPSUMIT [Concomitant]
     Active Substance: MACITENTAN
     Indication: SCLERODERMA
  3. ADCIRCA [Concomitant]
     Active Substance: TADALAFIL
     Indication: PRODUCT USED FOR UNKNOWN INDICATION
  4. OPSUMIT [Concomitant]
     Active Substance: MACITENTAN
     Indication: PULMONARY ARTERIAL HYPERTENSION
  5. REMODULIN [Suspect]
     Active Substance: TREPROSTINIL
     Indication: PULMONARY HYPERTENSION
     Dosage: 0.038 ?G/KG, CONTINUING
     Route: 041
     Dates: start: 20140813
  6. TRACLEER [Suspect]
     Active Substance: BOSENTAN\BOSENTAN MONOHYDRATE
     Indication: PRODUCT USED FOR UNKNOWN INDICATION
  7. REMODULIN [Suspect]
     Active Substance: TREPROSTINIL
     Indication: COR PULMONALE CHRONIC
     Dosage: 0.011 ?G/KG, CONTINUING
     Route: 041
     Dates: start: 20140813

REACTIONS (4)
  - Pericardial effusion [Recovered/Resolved]
  - Fluid retention [Unknown]
  - Pleural effusion [Recovered/Resolved]
  - Therapy cessation [Unknown]

NARRATIVE: CASE EVENT DATE: 20140926
